FAERS Safety Report 20212775 (Version 1)
Quarter: 2021Q4

REPORT INFORMATION
  Report Type: Report from Study
  Country: ES (occurrence: None)
  Receive Date: 20211221
  Receipt Date: 20211221
  Transmission Date: 20220304
  Serious: Yes (Other)
  Sender: FDA-Public Use
  Company Number: ES-ROCHE-2919791

PATIENT

DRUGS (8)
  1. TOCILIZUMAB [Suspect]
     Active Substance: TOCILIZUMAB
     Indication: COVID-19 pneumonia
     Dosage: TOTAL DOSE 600 MG
     Route: 042
  2. FENTANYL [Concomitant]
     Active Substance: FENTANYL
     Indication: COVID-19
     Dates: start: 20200405, end: 20200409
  3. PROPOFOL [Concomitant]
     Active Substance: PROPOFOL
     Indication: COVID-19
     Dates: start: 20200405, end: 20200409
  4. LOPINAVIR\RITONAVIR [Concomitant]
     Active Substance: LOPINAVIR\RITONAVIR
     Indication: COVID-19
     Dates: start: 20200404, end: 20200412
  5. HYDROXYCHLOROQUINE [Concomitant]
     Active Substance: HYDROXYCHLOROQUINE
     Indication: COVID-19
     Dates: start: 20200404, end: 20200412
  6. AZITHROMYCIN [Concomitant]
     Active Substance: AZITHROMYCIN
     Indication: COVID-19
     Dates: start: 20200405, end: 20200412
  7. CEFTRIAXONE [Concomitant]
     Active Substance: CEFTRIAXONE
     Indication: COVID-19
     Dates: start: 20200405, end: 20200412
  8. METHYLPREDNISOLONE [Concomitant]
     Active Substance: METHYLPREDNISOLONE
     Indication: COVID-19
     Dates: start: 20200404, end: 20200405

REACTIONS (1)
  - Acute respiratory distress syndrome [Recovered/Resolved]

NARRATIVE: CASE EVENT DATE: 20200405
